APPROVED DRUG PRODUCT: IMIQUIMOD
Active Ingredient: IMIQUIMOD
Strength: 5%
Dosage Form/Route: CREAM;TOPICAL
Application: A078837 | Product #001 | TE Code: AB
Applicant: PADAGIS ISRAEL PHARMACEUTICALS LTD
Approved: Sep 7, 2010 | RLD: No | RS: No | Type: RX